FAERS Safety Report 12657767 (Version 2)
Quarter: 2016Q3

REPORT INFORMATION
  Report Type: Report from Study
  Country: JP (occurrence: JP)
  Receive Date: 20160816
  Receipt Date: 20160913
  Transmission Date: 20161109
  Serious: Yes (Hospitalization)
  Sender: FDA-Public Use
  Company Number: JP-ROCHE-1812882

PATIENT
  Age: 30 Year
  Sex: Female
  Weight: 42 kg

DRUGS (6)
  1. CALONAL [Suspect]
     Active Substance: ACETAMINOPHEN
     Indication: MALIGNANT MELANOMA
     Dosage: DOSE INTERVAL UNCERTAINTY?DATE OF MOST RECENT DOSE: 19/JAN/2016
     Route: 048
     Dates: start: 20160106
  2. OXYCONTIN [Suspect]
     Active Substance: OXYCODONE HYDROCHLORIDE
     Indication: MALIGNANT MELANOMA
     Dosage: DOSAGE DURING A DAY: 10-20MG?THE FRACTIONATION DOSE FREQUENCY IS UNCERTAIN.?DATE OF MOST RECENT DOSE
     Route: 048
     Dates: start: 20160104
  3. TRAVELMIN (DIPHENHYDRAMINE SALICYLATE/DIPROPHYLLINE) [Suspect]
     Active Substance: DIPHENHYDRAMINE SALICYLATE\DYPHYLLINE
     Indication: MALIGNANT MELANOMA
     Dosage: DOSAGE IS UNCERTAIN.?DATE OF MOST RECENT DOSE: 12/JAN/2016
     Route: 048
     Dates: start: 20160104
  4. OXINORM (JAPAN) [Suspect]
     Active Substance: OXYCODONE HYDROCHLORIDE
     Indication: MALIGNANT MELANOMA
     Dosage: THE FRACTIONATION DOSE FREQUENCY IS UNCERTAIN.?DATE OF MOST RECENT DOSE: 07/JAN/2016
     Route: 048
     Dates: start: 20160104
  5. VEMURAFENIB [Suspect]
     Active Substance: VEMURAFENIB
     Indication: MALIGNANT MELANOMA
     Route: 048
     Dates: start: 20160108, end: 20160117
  6. VEMURAFENIB [Suspect]
     Active Substance: VEMURAFENIB
     Indication: MALIGNANT MELANOMA
     Route: 048
     Dates: start: 20160118, end: 20160321

REACTIONS (3)
  - Seborrhoeic keratosis [Recovering/Resolving]
  - Electrocardiogram QT prolonged [Not Recovered/Not Resolved]
  - Hepatic function abnormal [Not Recovered/Not Resolved]

NARRATIVE: CASE EVENT DATE: 20160109
